FAERS Safety Report 8722554 (Version 2)
Quarter: 2012Q4

REPORT INFORMATION
  Report Type: Report from Study
  Country: BE (occurrence: BE)
  Receive Date: 20120814
  Receipt Date: 20120913
  Transmission Date: 20130627
  Serious: Yes (Hospitalization)
  Sender: FDA-Public Use
  Company Number: BE-PFIZER INC-2012193441

PATIENT
  Age: 58 Year
  Sex: Female
  Weight: 68 kg

DRUGS (6)
  1. GENOTROPIN [Suspect]
     Indication: HYPOPITUITARISM
     Dosage: 0.4 mg/day, 7 injections/week
     Route: 058
     Dates: start: 20070911
  2. SERLAIN [Concomitant]
     Indication: DEPRESSION
     Dosage: UNK
     Dates: start: 20020215
  3. METATOP [Concomitant]
     Indication: SLEEP DISORDER
     Dosage: UNK
     Dates: start: 20040715
  4. PREVALON [Concomitant]
     Indication: MENOPAUSAL SYMPTOMS
     Dosage: UNK
     Dates: start: 20060715
  5. L-THYROXINE [Concomitant]
     Indication: HYPOTHYROIDISM
     Dosage: UNK
     Dates: start: 20080313
  6. T4 [Concomitant]
     Indication: BLOOD THYROID STIMULATING HORMONE DECREASED
     Dosage: UNK
     Dates: start: 20031103

REACTIONS (1)
  - Surgery [Unknown]
